FAERS Safety Report 9877179 (Version 1)
Quarter: 2014Q1

REPORT INFORMATION
  Report Type: Report from Study
  Country: MX (occurrence: MX)
  Receive Date: 20140206
  Receipt Date: 20140206
  Transmission Date: 20141002
  Serious: Yes (Death)
  Sender: FDA-Public Use
  Company Number: MX-ORION CORPORATION ORION PHARMA-ENTC2014-0045

PATIENT
  Age: 88 Year
  Sex: Female

DRUGS (3)
  1. STALEVO [Suspect]
     Indication: PARKINSON^S DISEASE
     Dosage: 50/12.5/200 MG
     Route: 048
     Dates: start: 20120916
  2. STALEVO [Suspect]
     Dosage: 100/25/200 MG
     Route: 048
  3. STALEVO [Suspect]
     Dosage: 100/25/200 MG
     Route: 048

REACTIONS (4)
  - Death [Fatal]
  - Incorrect dose administered [Unknown]
  - Wrong technique in drug usage process [Unknown]
  - Hypertension [Unknown]
